FAERS Safety Report 8575108-X (Version None)
Quarter: 2012Q2

REPORT INFORMATION
  Report Type: 
  Country: None (occurrence: None)
  Receive Date: 20120423
  Receipt Date: 20090821
  Transmission Date: 20120825
  Serious: Yes (Hospitalization, Other)
  Sender: FDA-Public Use
  Company Number: PHEH2009US07793

PATIENT
  Sex: Female

DRUGS (5)
  1. ANALGESICS (NO INGREDIENTS/SUBSTANCES) [Concomitant]
  2. ANTINEOPLASTIC AGENTS (NO INGREDIENTS/SUBSTANCES) [Concomitant]
  3. HYDROXYUREA (HYDROCYCARBAMIDE) [Concomitant]
  4. IBUPROFEN [Concomitant]
  5. EXJADE [Suspect]
     Dosage: 1250 MG DAILY, ORAL
     Route: 048
     Dates: start: 20070703, end: 20070802

REACTIONS (13)
  - RENAL DISORDER [None]
  - PROTEIN TOTAL INCREASED [None]
  - MALAISE [None]
  - SICKLE CELL ANAEMIA WITH CRISIS [None]
  - PROTEINURIA [None]
  - BLOOD ALBUMIN DECREASED [None]
  - BLOOD URINE PRESENT [None]
  - PYREXIA [None]
  - BLOOD CREATININE INCREASED [None]
  - URINE LEUKOCYTE ESTERASE POSITIVE [None]
  - BLOOD CREATINE PHOSPHOKINASE INCREASED [None]
  - HAEMOGLOBIN DECREASED [None]
  - GLOMERULAR FILTRATION RATE DECREASED [None]
